FAERS Safety Report 20941530 (Version 1)
Quarter: 2022Q2

REPORT INFORMATION
  Report Type: Spontaneous
  Country: IT (occurrence: IT)
  Receive Date: 20220610
  Receipt Date: 20220610
  Transmission Date: 20220720
  Serious: Yes (Hospitalization, Other)
  Sender: FDA-Public Use
  Company Number: IT-MINISAL02-870277

PATIENT
  Age: 69 Year
  Sex: Male

DRUGS (2)
  1. SERTRALINE [Suspect]
     Active Substance: SERTRALINE HYDROCHLORIDE
     Indication: Mixed anxiety and depressive disorder
     Dosage: 100 MILLIGRAM, ONCE A DAY
     Route: 048
  2. BROMAZEPAM [Concomitant]
     Active Substance: BROMAZEPAM
     Indication: Mixed anxiety and depressive disorder
     Dosage: UNK
     Route: 065

REACTIONS (3)
  - Drug abuse [Unknown]
  - Anxiety disorder due to a general medical condition [Unknown]
  - Overdose [Unknown]

NARRATIVE: CASE EVENT DATE: 20220222
